FAERS Safety Report 8770756 (Version 2)
Quarter: 2012Q4

REPORT INFORMATION
  Report Type: 
  Country: US (occurrence: US)
  Receive Date: 20120906
  Receipt Date: 20121109
  Transmission Date: 20130627
  Serious: Yes (Other)
  Sender: FDA-Public Use
  Company Number: US-PFIZER INC-2012218935

PATIENT
  Age: 57 Year
  Sex: Female
  Weight: 97.51 kg

DRUGS (2)
  1. PRISTIQ [Suspect]
     Indication: DEPRESSION
     Dosage: 50 mg, Daily
     Dates: start: 2009
  2. PRISTIQ [Suspect]
     Indication: CONFUSION
     Dosage: 50 mg, up to four times a day
     Dates: end: 2012

REACTIONS (6)
  - Off label use [Recovered/Resolved]
  - Staphylococcal infection [Unknown]
  - Depression [Not Recovered/Not Resolved]
  - Disturbance in attention [Not Recovered/Not Resolved]
  - Hiccups [Not Recovered/Not Resolved]
  - Withdrawal syndrome [Unknown]
